FAERS Safety Report 7418073-0 (Version None)
Quarter: 2011Q2

REPORT INFORMATION
  Report Type: 
  Country: None (occurrence: None)
  Receive Date: 20110415
  Receipt Date: 20110401
  Transmission Date: 20111010
  Serious: Yes (Hospitalization)
  Sender: FDA-Public Use
  Company Number: BE-ROCHE-769079

PATIENT
  Sex: Female

DRUGS (1)
  1. MIRCERA [Suspect]
     Route: 065
     Dates: start: 20110322

REACTIONS (3)
  - HEPATIC ENZYME ABNORMAL [None]
  - EATING DISORDER [None]
  - ABDOMINAL PAIN UPPER [None]
